FAERS Safety Report 7405903-1 (Version None)
Quarter: 2011Q2

REPORT INFORMATION
  Report Type: 
  Country: None (occurrence: None)
  Receive Date: 20110406
  Receipt Date: 20110406
  Transmission Date: 20111010
  Serious: No
  Sender: FDA-Public Use
  Company Number: None

PATIENT
  Age: 18 Year
  Sex: Male

DRUGS (1)
  1. ZYPREXA [Suspect]
     Dates: start: 20100208, end: 20100228

REACTIONS (4)
  - SUICIDAL IDEATION [None]
  - ASPARTATE AMINOTRANSFERASE INCREASED [None]
  - LIVER INJURY [None]
  - ALANINE AMINOTRANSFERASE INCREASED [None]
